FAERS Safety Report 8457346-X (Version None)
Quarter: 2012Q2

REPORT INFORMATION
  Report Type: 
  Country: None (occurrence: None)
  Receive Date: 20120621
  Receipt Date: 20120607
  Transmission Date: 20120825
  Serious: Yes (Other)
  Sender: FDA-Public Use
  Company Number: US-BAYER-2012-058080

PATIENT
  Age: 35 Year
  Sex: Female
  Weight: 63.492 kg

DRUGS (2)
  1. ALKA-SELTZER PLUS COLD AND COUGH (DAY) [Suspect]
     Indication: SINUS CONGESTION
     Dosage: BOTTLE COUNT 20S
     Route: 048
     Dates: start: 20120606, end: 20120607
  2. NAPROXEN (ALEVE) [Suspect]
     Dosage: BOTTLE COUNT 160S
     Route: 048
     Dates: start: 20120606, end: 20120607

REACTIONS (2)
  - SKIN MASS [None]
  - CHEST PAIN [None]
